FAERS Safety Report 21688073 (Version 1)
Quarter: 2022Q4

REPORT INFORMATION
  Report Type: Spontaneous
  Country: CN (occurrence: CN)
  Receive Date: 20221206
  Receipt Date: 20221206
  Transmission Date: 20230113
  Serious: Yes (Other)
  Sender: FDA-Public Use
  Company Number: CN-AMGEN-CHNSP2022207126

PATIENT

DRUGS (2)
  1. EPOETIN ALFA [Suspect]
     Active Substance: ERYTHROPOIETIN
     Indication: Anaemia
     Dosage: 6000 INTERNATIONAL UNIT, WEEKLY OR BIWEEKLY (AT A STARTING DOSE OF 6000 IU PER WEEK)
     Route: 065
  2. EPOETIN ALFA [Suspect]
     Active Substance: ERYTHROPOIETIN
     Indication: Chronic kidney disease

REACTIONS (2)
  - Adverse event [Unknown]
  - Hypertension [Unknown]
